FAERS Safety Report 12408571 (Version 1)
Quarter: 2016Q2

REPORT INFORMATION
  Report Type: Spontaneous
  Country: US (occurrence: US)
  Receive Date: 20160526
  Receipt Date: 20160526
  Transmission Date: 20160815
  Serious: Yes (Other)
  Sender: FDA-Public Use
  Company Number: US-PFIZER INC-2016268327

PATIENT
  Sex: Female

DRUGS (1)
  1. CYTOMEL [Suspect]
     Active Substance: LIOTHYRONINE SODIUM

REACTIONS (6)
  - Product use issue [Unknown]
  - Malaise [Unknown]
  - Supraventricular extrasystoles [Unknown]
  - Palpitations [Unknown]
  - Cardiac disorder [Unknown]
  - Ventricular extrasystoles [Unknown]
